FAERS Safety Report 8256909-4 (Version None)
Quarter: 2012Q2

REPORT INFORMATION
  Report Type: 
  Country: None (occurrence: None)
  Receive Date: 20120403
  Receipt Date: 20120330
  Transmission Date: 20120825
  Serious: Yes (Hospitalization, Other)
  Sender: FDA-Public Use
  Company Number: CA-ABBOTT-11P-028-0856672-00

PATIENT
  Sex: Male
  Weight: 90.8 kg

DRUGS (6)
  1. OMEPRAZOLE [Concomitant]
     Indication: CROHN'S DISEASE
  2. OMEPRAZOLE [Concomitant]
     Indication: GASTRIC DISORDER
     Route: 048
  3. AZATHIOPRINE [Concomitant]
     Indication: CROHN'S DISEASE
     Route: 048
  4. VENLAFAXINE [Concomitant]
     Indication: CROHN'S DISEASE
     Route: 048
  5. HUMIRA [Suspect]
     Indication: CROHN'S DISEASE
     Route: 058
     Dates: start: 20100810
  6. ALENDRONATE SODIUM [Concomitant]
     Indication: CROHN'S DISEASE
     Route: 048

REACTIONS (5)
  - CROHN'S DISEASE [None]
  - ANAL FISTULA [None]
  - FISTULA DISCHARGE [None]
  - ABSCESS INTESTINAL [None]
  - FISTULA [None]
